FAERS Safety Report 9449826 (Version 1)
Quarter: 2013Q3

REPORT INFORMATION
  Report Type: Report from Study
  Country: BR (occurrence: BR)
  Receive Date: 20130809
  Receipt Date: 20130809
  Transmission Date: 20140515
  Serious: Yes (Other)
  Sender: FDA-Public Use
  Company Number: PHHY2013BR085441

PATIENT
  Sex: Female

DRUGS (4)
  1. ACLASTA [Suspect]
     Indication: OSTEOPOROSIS
     Dosage: 5 MG, UNK
     Route: 042
     Dates: start: 2013
  2. IRON [Concomitant]
     Dosage: UNK UKN, UNK
     Dates: start: 2013
  3. APEVITIN BC                        /00369301/ [Concomitant]
     Dosage: UNK
     Dates: start: 2013
  4. BONECAL D [Concomitant]
     Dosage: UNK UKN, UNK
     Dates: start: 2013

REACTIONS (2)
  - Decreased appetite [Recovering/Resolving]
  - Vomiting [Recovering/Resolving]
